FAERS Safety Report 4787338-3 (Version None)
Quarter: 2005Q3

REPORT INFORMATION
  Report Type: 
  Country: None (occurrence: None)
  Receive Date: 20050926
  Receipt Date: 20050817
  Transmission Date: 20060218
  Serious: No
  Sender: FDA-Public Use
  Company Number: 216997

PATIENT
  Age: 51 Year
  Sex: Female
  Weight: 86.2 kg

DRUGS (5)
  1. AVASTIN [Suspect]
     Indication: NON-SMALL CELL LUNG CANCER
     Dosage: 1295 MG, Q3W, INTRAVENOUS
     Route: 042
     Dates: start: 20050629
  2. PEMETREXED (PEMETREXED) [Concomitant]
  3. BENADRYL [Concomitant]
  4. DECADRON [Concomitant]
  5. ANZEMET [Concomitant]

REACTIONS (1)
  - RASH [None]
